FAERS Safety Report 14237559 (Version 1)
Quarter: 2017Q4

REPORT INFORMATION
  Report Type: Spontaneous
  Country: None (occurrence: IE)
  Receive Date: 20171129
  Receipt Date: 20171129
  Transmission Date: 20180321
  Serious: Yes (Other)
  Sender: FDA-Public Use
  Company Number: IE-LABORATOIRE HRA PHARMA-2036319

PATIENT
  Age: 34 Year
  Sex: Female
  Weight: 65 kg

DRUGS (1)
  1. ELLA [Suspect]
     Active Substance: ULIPRISTAL ACETATE
     Indication: POST COITAL CONTRACEPTION
     Route: 048
     Dates: start: 20171026, end: 20171026

REACTIONS (3)
  - Abortion spontaneous [None]
  - Vaginal haemorrhage [None]
  - Unintended pregnancy [None]

NARRATIVE: CASE EVENT DATE: 20171118
